FAERS Safety Report 5809048-3 (Version None)
Quarter: 2008Q3

REPORT INFORMATION
  Report Type: 
  Country: None (occurrence: None)
  Receive Date: 20080714
  Receipt Date: 20080704
  Transmission Date: 20090109
  Serious: Yes (Death)
  Sender: FDA-Public Use
  Company Number: MX-SP-2008-02233

PATIENT
  Sex: Male

DRUGS (1)
  1. IMMUCYST [Suspect]
     Indication: BLADDER CANCER
     Dosage: NOT REPORTED.
     Route: 043

REACTIONS (4)
  - CARDIO-RESPIRATORY ARREST [None]
  - GASTROINTESTINAL HAEMORRHAGE [None]
  - HAEMORRHAGE [None]
  - THROMBOCYTOPENIA [None]
